FAERS Safety Report 7227720-8 (Version None)
Quarter: 2011Q1

REPORT INFORMATION
  Report Type: 
  Country: None (occurrence: None)
  Receive Date: 20110114
  Receipt Date: 20110107
  Transmission Date: 20110831
  Serious: Yes (Other)
  Sender: FDA-Public Use
  Company Number: US-US-EMD SERONO, INC.-232608J09USA

PATIENT
  Sex: Female
  Weight: 64 kg

DRUGS (2)
  1. SIMVASTATIN [Concomitant]
     Indication: BLOOD CHOLESTEROL INCREASED
     Route: 065
  2. REBIF [Suspect]
     Indication: MULTIPLE SCLEROSIS
     Route: 058
     Dates: start: 20070905

REACTIONS (4)
  - TYPE 2 DIABETES MELLITUS [None]
  - PERIPHERAL COLDNESS [None]
  - FEELING COLD [None]
  - BLOOD CHOLESTEROL INCREASED [None]
